FAERS Safety Report 24675725 (Version 1)
Quarter: 2024Q4

REPORT INFORMATION
  Report Type: Report from Study
  Country: DE (occurrence: DE)
  Receive Date: 20241128
  Receipt Date: 20241128
  Transmission Date: 20250115
  Serious: Yes (Hospitalization, Other)
  Sender: BAXTER
  Company Number: DE-BAXTER-2024BAX028186

PATIENT
  Age: 68 Year
  Sex: Male

DRUGS (4)
  1. OLIMEL E [Suspect]
     Active Substance: AMINO ACIDS\DEXTROSE\ELECTROLYTES NOS\SOYBEAN OIL
     Indication: Parenteral nutrition
     Dosage: 2000 ML ADMINISTERED VIA CENTRAL VENOUS ROUTE
     Route: 042
     Dates: start: 20241105, end: 20241120
  2. ELECTROLYTES NOS\MINERALS [Suspect]
     Active Substance: ELECTROLYTES NOS\MINERALS
     Indication: Parenteral nutrition
     Dosage: (MANUFACTURER: LABORATOIRE AGUETTANT S.A.S.), 10 ML, ADMINISTERED VIA CENTRAL VENOUS ROUTE
     Route: 042
     Dates: start: 20241105, end: 20241120
  3. VITAMINS [Suspect]
     Active Substance: VITAMINS
     Indication: Parenteral nutrition
     Dosage: 932 MG, ADMINISTERED VIA CENTRAL VENOUS ROUTE
     Route: 042
     Dates: start: 20241105, end: 20241120
  4. UNSPECIFIED INGREDIENT [Suspect]
     Active Substance: UNSPECIFIED INGREDIENT
     Route: 065

REACTIONS (2)
  - Hypotonia [Not Recovered/Not Resolved]
  - Syncope [Not Recovered/Not Resolved]

NARRATIVE: CASE EVENT DATE: 20241120
